FAERS Safety Report 7499243-2 (Version None)
Quarter: 2011Q2

REPORT INFORMATION
  Report Type: 
  Country: None (occurrence: None)
  Receive Date: 20110524
  Receipt Date: 20110513
  Transmission Date: 20111010
  Serious: Yes (Other)
  Sender: FDA-Public Use
  Company Number: AR-AMGEN-ARGSP2011020654

PATIENT
  Age: 46 Year
  Sex: Female
  Weight: 60 kg

DRUGS (2)
  1. NAPROXEN [Suspect]
     Indication: PAIN
     Dosage: UNK
     Dates: start: 20070101, end: 20110201
  2. ENBREL [Suspect]
     Indication: RHEUMATOID ARTHRITIS
     Dosage: 50 MG, WEEKLY
     Route: 058
     Dates: start: 20070101

REACTIONS (4)
  - FLUID RETENTION [None]
  - WEIGHT INCREASED [None]
  - ANAEMIA [None]
  - BLOOD PRESSURE INCREASED [None]
